FAERS Safety Report 11784276 (Version 2)
Quarter: 2015Q4

REPORT INFORMATION
  Report Type: Report from Study
  Country: NL (occurrence: NL)
  Receive Date: 20151128
  Receipt Date: 20151203
  Transmission Date: 20160305
  Serious: Yes (Death, Other)
  Sender: FDA-Public Use
  Company Number: NL-AMGEN-NLDSL2015125127

PATIENT
  Age: 88 Year
  Sex: Male

DRUGS (1)
  1. XGEVA [Suspect]
     Active Substance: DENOSUMAB
     Indication: METASTASES TO PROSTATE
     Dosage: UNK
     Route: 065
     Dates: start: 20130605

REACTIONS (5)
  - Metastasis [Unknown]
  - Paraplegia [Recovered/Resolved]
  - Renal atrophy [Unknown]
  - Death [Fatal]
  - Spinal cord injury [Unknown]

NARRATIVE: CASE EVENT DATE: 2013
